FAERS Safety Report 15237571 (Version 3)
Quarter: 2019Q3

REPORT INFORMATION
  Report Type: Spontaneous
  Country: US (occurrence: US)
  Receive Date: 20180803
  Receipt Date: 20190830
  Transmission Date: 20191004
  Serious: No
  Sender: FDA-Public Use
  Company Number: US-SA-2018SA208255

PATIENT
  Age: 31 Year
  Sex: Female
  Weight: 68 kg

DRUGS (5)
  1. CALCIUM VITAMIN D [Concomitant]
     Active Substance: CALCIUM\VITAMIN D
     Indication: ROUTINE HEALTH MAINTENANCE
     Dosage: UNK UNK, QD
     Route: 048
  2. CEREZYME [Suspect]
     Active Substance: IMIGLUCERASE
     Dosage: 4000 U, QOW
     Route: 041
     Dates: start: 20180713
  3. CEREZYME [Suspect]
     Active Substance: IMIGLUCERASE
     Dosage: 4000 U, QOW
     Route: 041
     Dates: start: 201806, end: 20180713
  4. OMEGA 3 [FISH OIL] [Concomitant]
     Active Substance: FISH OIL
     Indication: ROUTINE HEALTH MAINTENANCE
     Dosage: 1000 MG, QD
     Route: 048
  5. CEREZYME [Suspect]
     Active Substance: IMIGLUCERASE
     Dosage: 60 U/KG, UNK
     Route: 041
     Dates: start: 2009, end: 2009

REACTIONS (12)
  - Blood count abnormal [Not Recovered/Not Resolved]
  - Haemoglobin decreased [Not Recovered/Not Resolved]
  - Blood bilirubin increased [Not Recovered/Not Resolved]
  - Musculoskeletal stiffness [Recovered/Resolved]
  - Haematocrit abnormal [Not Recovered/Not Resolved]
  - Vitamin B12 decreased [Not Recovered/Not Resolved]
  - Exposure during pregnancy [Unknown]
  - Splenomegaly [Not Recovered/Not Resolved]
  - Palpitations [Recovered/Resolved]
  - Platelet count decreased [Not Recovered/Not Resolved]
  - Back pain [Recovered/Resolved]
  - Pain in extremity [Recovered/Resolved]

NARRATIVE: CASE EVENT DATE: 20180713
